FAERS Safety Report 20219611 (Version 1)
Quarter: 2021Q4

REPORT INFORMATION
  Report Type: Spontaneous
  Country: US (occurrence: US)
  Receive Date: 20211222
  Receipt Date: 20211222
  Transmission Date: 20220303
  Serious: No
  Sender: FDA-Public Use
  Company Number: US-PFIZER INC-202101277658

PATIENT
  Age: 65 Year
  Sex: Female

DRUGS (2)
  1. IBRANCE [Suspect]
     Active Substance: PALBOCICLIB
     Indication: Breast cancer female
     Dosage: 100 MG, CYCLIC (ONCE DAILY 21ON/ 7OFF)
     Dates: start: 20210216
  2. LETROZOLE [Concomitant]
     Active Substance: LETROZOLE
     Dosage: UNK

REACTIONS (6)
  - Rash macular [Not Recovered/Not Resolved]
  - Dysuria [Unknown]
  - Urinary tract infection [Unknown]
  - Vulvovaginal discomfort [Unknown]
  - Vulvovaginal dryness [Unknown]
  - Vulvovaginal inflammation [Unknown]

NARRATIVE: CASE EVENT DATE: 20210101
